FAERS Safety Report 6103555-4 (Version None)
Quarter: 2009Q1

REPORT INFORMATION
  Report Type: 
  Country: None (occurrence: None)
  Receive Date: 20090305
  Receipt Date: 20090202
  Transmission Date: 20090719
  Serious: No
  Sender: FDA-Public Use
  Company Number: US-BAYER-200910385BCC

PATIENT
  Sex: Male

DRUGS (3)
  1. ALEVE [Suspect]
     Indication: PROSTATITIS
     Dosage: UNIT DOSE: 220 MG
     Dates: start: 20090129
  2. ALEVE [Suspect]
     Dosage: UNIT DOSE: 220 MG
  3. NORVASC [Concomitant]

REACTIONS (1)
  - BLOOD PRESSURE INCREASED [None]
